FAERS Safety Report 9279127 (Version 1)
Quarter: 2013Q2

REPORT INFORMATION
  Report Type: Spontaneous
  Country: FR (occurrence: FR)
  Receive Date: 20130508
  Receipt Date: 20130508
  Transmission Date: 20140414
  Serious: Yes (Other)
  Sender: FDA-Public Use
  Company Number: FR-ASTRAZENECA-2013SE29982

PATIENT
  Age: 20871 Day
  Sex: Male

DRUGS (1)
  1. BRILIQUE [Suspect]
     Route: 048
     Dates: start: 20130207, end: 20130216

REACTIONS (7)
  - Allodynia [Recovered/Resolved]
  - Apnoea [Recovered/Resolved]
  - Dyspnoea [Recovered/Resolved]
  - Paraesthesia [Recovered/Resolved]
  - Sleep disorder due to general medical condition, insomnia type [Recovered/Resolved]
  - Activities of daily living impaired [Recovered/Resolved]
  - Dysaesthesia [Recovered/Resolved]
